FAERS Safety Report 5461141-3 (Version None)
Quarter: 2007Q3

REPORT INFORMATION
  Report Type: 
  Country: None (occurrence: None)
  Receive Date: 20070920
  Receipt Date: 20070911
  Transmission Date: 20080115
  Serious: Yes (Other)
  Sender: FDA-Public Use
  Company Number: PHNR2007AU01847

PATIENT
  Age: 54 Year
  Sex: Male

DRUGS (3)
  1. SIMVASTATIN [Concomitant]
     Dates: start: 20020901, end: 20030328
  2. OMEPRAZOLE [Concomitant]
     Dates: start: 20020901, end: 20030905
  3. CLOZARIL [Suspect]
     Indication: SCHIZOPHRENIA
     Dosage: 12 - 500MG DAILY
     Route: 048
     Dates: start: 19940815, end: 20030325

REACTIONS (24)
  - ABDOMINAL DISTENSION [None]
  - ALANINE AMINOTRANSFERASE INCREASED [None]
  - ASPARTATE AMINOTRANSFERASE INCREASED [None]
  - BLADDER CANCER [None]
  - BLADDER NEOPLASM SURGERY [None]
  - BLOOD ALBUMIN DECREASED [None]
  - BLOOD ALKALINE PHOSPHATASE ABNORMAL [None]
  - BLOOD CALCIUM DECREASED [None]
  - BLOOD CHLORIDE INCREASED [None]
  - BLOOD CREATINE PHOSPHOKINASE INCREASED [None]
  - BLOOD CREATININE INCREASED [None]
  - BLOOD MAGNESIUM ABNORMAL [None]
  - BLOOD PHOSPHORUS DECREASED [None]
  - BLOOD POTASSIUM INCREASED [None]
  - BLOOD SODIUM ABNORMAL [None]
  - BLOOD UREA INCREASED [None]
  - CARBON DIOXIDE ABNORMAL [None]
  - FAECALOMA [None]
  - GAMMA-GLUTAMYLTRANSFERASE INCREASED [None]
  - HYDRONEPHROSIS [None]
  - MALAISE [None]
  - PROTEIN TOTAL ABNORMAL [None]
  - URETERIC OBSTRUCTION [None]
  - VOMITING [None]
